FAERS Safety Report 25171277 (Version 1)
Quarter: 2025Q2

REPORT INFORMATION
  Report Type: Spontaneous
  Country: RO (occurrence: RO)
  Receive Date: 20250408
  Receipt Date: 20250408
  Transmission Date: 20250717
  Serious: Yes (Hospitalization, Other)
  Sender: AUROBINDO
  Company Number: RO-AUROBINDO-AUR-APL-2018-052460

PATIENT
  Age: 10 Year
  Sex: Male

DRUGS (2)
  1. SERTRALINE [Suspect]
     Active Substance: SERTRALINE HYDROCHLORIDE
     Indication: Neurotic disorder of childhood
     Route: 065
  2. ALPRAZOLAM [Suspect]
     Active Substance: ALPRAZOLAM
     Indication: Product used for unknown indication
     Route: 065

REACTIONS (5)
  - Hallucinations, mixed [Unknown]
  - Psychotic disorder [Recovered/Resolved]
  - Obsessive-compulsive disorder [Unknown]
  - Anxiety [Unknown]
  - Tic [Unknown]
